FAERS Safety Report 5771853-X (Version None)
Quarter: 2008Q2

REPORT INFORMATION
  Report Type: 
  Country: None (occurrence: None)
  Receive Date: 20080613
  Receipt Date: 20080530
  Transmission Date: 20081010
  Serious: Yes (Hospitalization)
  Sender: FDA-Public Use
  Company Number: B0503478A

PATIENT
  Age: 60 Year
  Sex: Female

DRUGS (1)
  1. ZYBAN [Suspect]
     Indication: DRUG USE FOR UNKNOWN INDICATION
     Route: 048
     Dates: start: 20070201, end: 20070501

REACTIONS (13)
  - ADVERSE DRUG REACTION [None]
  - ANAEMIA [None]
  - C-REACTIVE PROTEIN INCREASED [None]
  - HYPERHIDROSIS [None]
  - INFLAMMATION [None]
  - MUSCULOSKELETAL PAIN [None]
  - MYALGIA [None]
  - MYOCARDIAL INFARCTION [None]
  - ORAL CANDIDIASIS [None]
  - PAIN OF SKIN [None]
  - PYREXIA [None]
  - RED BLOOD CELL SEDIMENTATION RATE INCREASED [None]
  - SERUM SICKNESS [None]
